FAERS Safety Report 19150755 (Version 1)
Quarter: 2021Q2

REPORT INFORMATION
  Report Type: Spontaneous
  Country: CA (occurrence: CA)
  Receive Date: 20210419
  Receipt Date: 20210419
  Transmission Date: 20210717
  Serious: Yes (Other)
  Sender: FDA-Public Use
  Company Number: CA-ROCHE-2811855

PATIENT
  Sex: Male

DRUGS (1)
  1. BEVACIZUMAB. [Suspect]
     Active Substance: BEVACIZUMAB
     Indication: BRAIN NEOPLASM MALIGNANT
     Dosage: THERAPY DURATION: 43.0 DAYS
     Route: 042

REACTIONS (2)
  - Limb injury [Not Recovered/Not Resolved]
  - Cellulitis [Not Recovered/Not Resolved]
